FAERS Safety Report 17075144 (Version 1)
Quarter: 2019Q4

REPORT INFORMATION
  Report Type: Spontaneous
  Country: US (occurrence: US)
  Receive Date: 20191126
  Receipt Date: 20191126
  Transmission Date: 20200122
  Serious: Yes (Hospitalization, Other)
  Sender: FDA-Public Use
  Company Number: US-BAYER-2019-210641

PATIENT
  Age: 49 Year
  Sex: Male

DRUGS (5)
  1. ASPIRIN (CARDIO) [Suspect]
     Active Substance: ASPIRIN
     Dosage: UNK
  2. WARFARIN [Suspect]
     Active Substance: WARFARIN
  3. METOPROLOL. [Concomitant]
     Active Substance: METOPROLOL
  4. LISINOPRIL. [Concomitant]
     Active Substance: LISINOPRIL
  5. SERTRALINE [Concomitant]
     Active Substance: SERTRALINE HYDROCHLORIDE
     Dosage: UNK

REACTIONS (5)
  - Labelled drug-drug interaction medication error [None]
  - Lethargy [None]
  - Melaena [None]
  - Anaemia [None]
  - Gastrointestinal haemorrhage [None]
